FAERS Safety Report 7292539-9 (Version None)
Quarter: 2011Q1

REPORT INFORMATION
  Report Type: 
  Country: None (occurrence: None)
  Receive Date: 20110215
  Receipt Date: 20110208
  Transmission Date: 20110831
  Serious: Yes (Other)
  Sender: FDA-Public Use
  Company Number: US-BAYER-2011-013471

PATIENT
  Sex: Male

DRUGS (4)
  1. NORCO [Concomitant]
     Dosage: UNK UNK, QID
     Route: 048
  2. ASPIRIN [Concomitant]
     Dosage: UNK UNK, QD
     Route: 048
  3. IRON [IRON] [Concomitant]
     Dosage: UNK UNK, QD
     Route: 048
  4. PHILLIPS' MILK OF MAGNESIA LIQUID CHERRY [Suspect]
     Indication: CONSTIPATION
     Dosage: 2 TABLESPOONS
     Route: 048
     Dates: start: 20110201

REACTIONS (1)
  - FAECES DISCOLOURED [None]
